FAERS Safety Report 9702389 (Version 4)
Quarter: 2014Q1

REPORT INFORMATION
  Report Type: Spontaneous
  Country: JP (occurrence: JP)
  Receive Date: 20131121
  Receipt Date: 20140314
  Transmission Date: 20141002
  Serious: Yes (Hospitalization)
  Sender: FDA-Public Use
  Company Number: JP-JNJFOC-20131109509

PATIENT
  Age: 4 Decade
  Sex: Male

DRUGS (6)
  1. PREZISTA NAIVE [Suspect]
     Indication: HIV INFECTION
     Dosage: 300 MG X 2 TABLETS TWICE DAILY
     Route: 048
     Dates: start: 201302
  2. PREZISTA NAIVE [Suspect]
     Indication: HIV INFECTION
     Dosage: 400 X 2 TABLETS PER DAY, ONCE DAILY
     Route: 048
     Dates: start: 201106, end: 201302
  3. TRUVADA [Suspect]
     Indication: HIV INFECTION
     Route: 048
     Dates: start: 201106
  4. RITONAVIR [Suspect]
     Indication: HIV INFECTION
     Route: 048
     Dates: start: 201302
  5. RITONAVIR [Suspect]
     Indication: HIV INFECTION
     Route: 048
     Dates: start: 201106, end: 201302
  6. ZIDOVUDINE [Suspect]
     Indication: ACQUIRED IMMUNODEFICIENCY SYNDROME
     Route: 065

REACTIONS (2)
  - AIDS dementia complex [Recovering/Resolving]
  - Drug resistance [Not Recovered/Not Resolved]
